FAERS Safety Report 7987200-9 (Version None)
Quarter: 2011Q4

REPORT INFORMATION
  Report Type: 
  Country: None (occurrence: None)
  Receive Date: 20111216
  Receipt Date: 20111207
  Transmission Date: 20120403
  Serious: Yes (Hospitalization)
  Sender: FDA-Public Use
  Company Number: US-JNJFOC-20111204569

PATIENT
  Sex: Male
  Weight: 108 kg

DRUGS (9)
  1. CALCIUM CARBONATE [Concomitant]
  2. REMICADE [Suspect]
     Route: 042
     Dates: start: 20110413
  3. VITAMIN D [Concomitant]
  4. MUCINEX [Concomitant]
  5. ACETAMINOPHEN [Concomitant]
  6. REMICADE [Suspect]
     Indication: CROHN'S DISEASE
     Route: 042
     Dates: start: 20111129
  7. BIAXIN [Concomitant]
     Indication: RESPIRATORY TRACT INFECTION
     Dates: start: 20111201
  8. MESALAMINE [Concomitant]
     Route: 048
  9. ALBUTEROL [Concomitant]

REACTIONS (2)
  - CROHN'S DISEASE [None]
  - DRUG INEFFECTIVE [None]
